FAERS Safety Report 20758333 (Version 2)
Quarter: 2022Q2

REPORT INFORMATION
  Report Type: Report from Study
  Country: KR (occurrence: KR)
  Receive Date: 20220427
  Receipt Date: 20220615
  Transmission Date: 20220721
  Serious: Yes (Death, Other)
  Sender: FDA-Public Use
  Company Number: KR-BRISTOL-MYERS SQUIBB COMPANY-2022-024420

PATIENT
  Age: 58 Year
  Sex: Male

DRUGS (2)
  1. YERVOY [Suspect]
     Active Substance: IPILIMUMAB
     Indication: Hepatocellular carcinoma
     Dosage: DOSE UNITS: 200/40 MG/ML, FREQUENCY: ONCE
     Route: 042
     Dates: start: 20220225, end: 20220225
  2. OPDIVO [Suspect]
     Active Substance: NIVOLUMAB
     Indication: Hepatocellular carcinoma
     Dosage: DOSE UNITS: 80/8 MG/ML, FREQUENCY: ONCE
     Route: 042
     Dates: start: 20220225, end: 20220225

REACTIONS (1)
  - Hepatic failure [Fatal]
